FAERS Safety Report 8312572-5 (Version None)
Quarter: 2012Q2

REPORT INFORMATION
  Report Type: 
  Country: None (occurrence: None)
  Receive Date: 20120425
  Receipt Date: 20120425
  Transmission Date: 20120825
  Serious: Yes (Hospitalization)
  Sender: FDA-Public Use
  Company Number: None

PATIENT
  Age: 51 Year
  Sex: Male
  Weight: 83.9154 kg

DRUGS (1)
  1. CLINDAMYCIN [Suspect]
     Indication: SKIN BACTERIAL INFECTION
     Dosage: DAILY
     Dates: start: 20111116, end: 20111119

REACTIONS (3)
  - DIARRHOEA [None]
  - RASH [None]
  - DRUG INEFFECTIVE [None]
